FAERS Safety Report 24822845 (Version 1)
Quarter: 2025Q1

REPORT INFORMATION
  Report Type: Spontaneous
  Country: US (occurrence: US)
  Receive Date: 20250109
  Receipt Date: 20250109
  Transmission Date: 20250409
  Serious: Yes (Hospitalization, Other)
  Sender: AMGEN
  Company Number: US-AMGEN-USASP2024256904

PATIENT
  Age: 36 Year
  Sex: Female

DRUGS (5)
  1. PREDNISONE [Suspect]
     Active Substance: PREDNISONE
     Indication: Atypical haemolytic uraemic syndrome
     Route: 065
  2. ECULIZUMAB [Concomitant]
     Active Substance: ECULIZUMAB
  3. ECULIZUMAB [Concomitant]
     Active Substance: ECULIZUMAB
     Dosage: UNK, QWK
  4. RAVULIZUMAB [Concomitant]
     Active Substance: RAVULIZUMAB
  5. BUDESONIDE [Concomitant]
     Active Substance: BUDESONIDE

REACTIONS (5)
  - Duodenal ulcer [Unknown]
  - Jejunal ulcer [Unknown]
  - Large intestinal ulcer [Unknown]
  - Drug effective for unapproved indication [Unknown]
  - Off label use [Unknown]
